FAERS Safety Report 5621992-9 (Version None)
Quarter: 2008Q1

REPORT INFORMATION
  Report Type: 
  Country: None (occurrence: None)
  Receive Date: 20080211
  Receipt Date: 20080129
  Transmission Date: 20080703
  Serious: Yes (Death, Hospitalization)
  Sender: FDA-Public Use
  Company Number: HU-AMGEN-UK261422

PATIENT
  Sex: Female

DRUGS (1)
  1. PANITUMUMAB [Suspect]
     Indication: SQUAMOUS CELL CARCINOMA
     Route: 042
     Dates: start: 20071218, end: 20071218

REACTIONS (2)
  - CARDIAC FAILURE [None]
  - ILIAC ARTERY EMBOLISM [None]
